FAERS Safety Report 17541794 (Version 1)
Quarter: 2020Q1

REPORT INFORMATION
  Report Type: Spontaneous
  Country: US (occurrence: US)
  Receive Date: 20200313
  Receipt Date: 20200313
  Transmission Date: 20200409
  Serious: No
  Sender: FDA-Public Use
  Company Number: US-ALMIRALL, LLC-2019AQU000095

PATIENT

DRUGS (3)
  1. ACZONE [Suspect]
     Active Substance: DAPSONE
     Indication: ACNE
     Dosage: 7.5 %, QD
     Route: 061
  2. ACZONE [Suspect]
     Active Substance: DAPSONE
     Dosage: 5 %, QD
  3. CLINDAMYCIN PLEDGET [Concomitant]
     Indication: ACNE
     Dosage: UNK
     Route: 061

REACTIONS (3)
  - Prescription drug used without a prescription [Unknown]
  - Acne [Unknown]
  - Drug ineffective [Unknown]
